FAERS Safety Report 21115974 (Version 1)
Quarter: 2022Q3

REPORT INFORMATION
  Report Type: Spontaneous
  Country: US (occurrence: US)
  Receive Date: 20220721
  Receipt Date: 20220721
  Transmission Date: 20221027
  Serious: No
  Sender: FDA-Public Use
  Company Number: US-SA-SAC20220719000660

PATIENT
  Age: 77 Year
  Sex: Female
  Weight: 113.38 kg

DRUGS (2)
  1. PLAVIX [Suspect]
     Active Substance: CLOPIDOGREL BISULFATE
     Indication: Aortic valve replacement
     Dosage: UNK
     Route: 065
  2. ELIQUIS [Concomitant]
     Active Substance: APIXABAN
     Dosage: 5 MG, BID

REACTIONS (1)
  - Atrial fibrillation [Unknown]
